FAERS Safety Report 15061453 (Version 1)
Quarter: 2018Q2

REPORT INFORMATION
  Report Type: Spontaneous
  Country: US (occurrence: US)
  Receive Date: 20180625
  Receipt Date: 20180625
  Transmission Date: 20180711
  Serious: No
  Sender: FDA-Public Use
  Company Number: US-ROCHE-2080513

PATIENT

DRUGS (1)
  1. KLONOPIN [Suspect]
     Active Substance: CLONAZEPAM
     Indication: PRODUCT USED FOR UNKNOWN INDICATION
     Dosage: 1.5 MG DAILY DIVIDED INTO .5 MG BID
     Route: 065

REACTIONS (2)
  - Agoraphobia [Unknown]
  - Generalised anxiety disorder [Unknown]
